FAERS Safety Report 7045286-2 (Version None)
Quarter: 2010Q4

REPORT INFORMATION
  Report Type: 
  Country: None (occurrence: None)
  Receive Date: 20101014
  Receipt Date: 20100802
  Transmission Date: 20110411
  Serious: No
  Sender: FDA-Public Use
  Company Number: US-ALLERGAN-1010015US

PATIENT
  Age: 57 Year
  Sex: Female

DRUGS (4)
  1. LATISSE [Suspect]
     Indication: GROWTH OF EYELASHES
     Dosage: 1 GTT, QHS
     Route: 061
     Dates: start: 20100501, end: 20100701
  2. LATISSE [Suspect]
     Indication: HAIR GROWTH ABNORMAL
  3. UNSPECIFIED HORMONES [Concomitant]
     Indication: HYPERTENSION
     Dosage: UNK
     Route: 048
  4. DARVOCET [Concomitant]
     Indication: ARTHRALGIA
     Dosage: UNK
     Route: 048

REACTIONS (6)
  - DRUG ADMINISTERED AT INAPPROPRIATE SITE [None]
  - DRY EYE [None]
  - ERYTHEMA OF EYELID [None]
  - EYELID PAIN [None]
  - MADAROSIS [None]
  - WRONG TECHNIQUE IN DRUG USAGE PROCESS [None]
